FAERS Safety Report 4861911-6 (Version None)
Quarter: 2005Q4

REPORT INFORMATION
  Report Type: 
  Country: None (occurrence: None)
  Receive Date: 20051130
  Receipt Date: 20050922
  Transmission Date: 20060501
  Serious: No
  Sender: FDA-Public Use
  Company Number: MPS1-10436

PATIENT
  Age: 18 Year
  Sex: Female
  Weight: 119.7496 kg

DRUGS (1)
  1. ALDURAZYME [Suspect]
     Indication: MUCOPOLYSACCHARIDOSIS I
     Dosage: 69.6 MG QWK IV
     Route: 042
     Dates: start: 20050225

REACTIONS (2)
  - FALL [None]
  - OEDEMA PERIPHERAL [None]
